FAERS Safety Report 14682747 (Version 1)
Quarter: 2018Q1

REPORT INFORMATION
  Report Type: Spontaneous
  Country: US (occurrence: US)
  Receive Date: 20180327
  Receipt Date: 20180327
  Transmission Date: 20180509
  Serious: No
  Sender: FDA-Public Use
  Company Number: US-PHARMING-PHAUS2018000155

PATIENT

DRUGS (1)
  1. RUCONEST [Suspect]
     Active Substance: HUMAN C1-ESTERASE INHIBITOR
     Indication: HEREDITARY ANGIOEDEMA
     Dosage: 3100 IU, AS NEEDED, NO MORE THAN 2 DOSES WITHIN 24 HOURS
     Route: 042
     Dates: start: 20160817

REACTIONS (1)
  - Hereditary angioedema [Recovered/Resolved]
